FAERS Safety Report 8261022-6 (Version None)
Quarter: 2012Q2

REPORT INFORMATION
  Report Type: 
  Country: None (occurrence: None)
  Receive Date: 20120405
  Receipt Date: 20120330
  Transmission Date: 20120825
  Serious: No
  Sender: FDA-Public Use
  Company Number: US-PFIZER INC-2012082072

PATIENT
  Sex: Female
  Weight: 70.295 kg

DRUGS (5)
  1. TOPIRAMATE [Concomitant]
     Indication: CONVULSION
     Dosage: UNK
  2. DETROL LA [Suspect]
     Indication: URINARY INCONTINENCE
     Dosage: 2 MG, 1X/DAY
     Route: 048
  3. CLONAZEPAM [Concomitant]
     Dosage: UNK
  4. SYNTHROID [Concomitant]
     Indication: HYPOTHYROIDISM
     Dosage: UNK
  5. NEXIUM [Concomitant]
     Indication: CONVULSION
     Dosage: UNK

REACTIONS (3)
  - OROPHARYNGEAL DISCOMFORT [None]
  - NASOPHARYNGITIS [None]
  - RHINORRHOEA [None]
